FAERS Safety Report 8993229 (Version 1)
Quarter: 2013Q1

REPORT INFORMATION
  Report Type: Spontaneous
  Country: US (occurrence: US)
  Receive Date: 20130102
  Receipt Date: 20130102
  Transmission Date: 20140127
  Serious: No
  Sender: FDA-Public Use
  Company Number: US-TEVA-377654USA

PATIENT
  Sex: 0

DRUGS (1)
  1. COPAXONE [Suspect]

REACTIONS (1)
  - Adverse drug reaction [Unknown]
